FAERS Safety Report 21931334 (Version 1)
Quarter: 2023Q1

REPORT INFORMATION
  Report Type: Spontaneous
  Country: US (occurrence: US)
  Receive Date: 20230131
  Receipt Date: 20230131
  Transmission Date: 20230417
  Serious: Yes (Other)
  Sender: FDA-Public Use
  Company Number: US-GLAXOSMITHKLINE-US2023010121

PATIENT

DRUGS (2)
  1. BENLYSTA [Suspect]
     Active Substance: BELIMUMAB
     Indication: Lupus nephritis
     Dosage: UNK
     Dates: start: 20220201
  2. MYCOPHENOLIC ACID [Concomitant]
     Active Substance: MYCOPHENOLIC ACID
     Indication: Lupus nephritis
     Dosage: 500 MG, BID (TWICE A DAY)
     Dates: start: 20220201

REACTIONS (3)
  - Lupus nephritis [Unknown]
  - Condition aggravated [Unknown]
  - Nephropathy [Unknown]

NARRATIVE: CASE EVENT DATE: 20220201
